FAERS Safety Report 22148864 (Version 1)
Quarter: 2023Q1

REPORT INFORMATION
  Report Type: Spontaneous
  Country: US (occurrence: US)
  Receive Date: 20230328
  Receipt Date: 20230328
  Transmission Date: 20230418
  Serious: No
  Sender: FDA-Public Use
  Company Number: US-CTI BIOPHARMA-2023US03301

PATIENT

DRUGS (2)
  1. VONJO [Suspect]
     Active Substance: PACRITINIB
     Indication: Myeloproliferative neoplasm
     Dosage: 200 MG, BID
     Route: 048
     Dates: start: 20221216
  2. VONJO [Suspect]
     Active Substance: PACRITINIB
     Dosage: 200 MG, BID
     Route: 048
     Dates: start: 20230105

REACTIONS (14)
  - Transfusion [Unknown]
  - Abdominal pain [Unknown]
  - Flatulence [Unknown]
  - Inflammation [Unknown]
  - Product dose omission issue [Unknown]
  - COVID-19 [Unknown]
  - Hypotension [Unknown]
  - Dizziness [Unknown]
  - Haemoglobin decreased [Unknown]
  - Diarrhoea [Unknown]
  - Platelet count decreased [Unknown]
  - Red blood cell count decreased [Unknown]
  - Cough [Unknown]
  - Peripheral swelling [Unknown]
